FAERS Safety Report 5709640-0 (Version None)
Quarter: 2008Q2

REPORT INFORMATION
  Report Type: 
  Country: None (occurrence: None)
  Receive Date: 20080418
  Receipt Date: 20080414
  Transmission Date: 20081010
  Serious: Yes (Death, Life-Threatening, Hospitalization)
  Sender: FDA-Public Use
  Company Number: B0516778A

PATIENT
  Age: 69 Year
  Sex: Female

DRUGS (2)
  1. HYCAMTIN [Suspect]
     Indication: OVARIAN CANCER
     Dosage: 3MGM2 PER DAY
     Route: 042
     Dates: start: 20060309, end: 20060622
  2. PACLITAXEL [Suspect]
     Indication: OVARIAN CANCER
     Dosage: 80MGM2 PER DAY
     Route: 042
     Dates: start: 20060309, end: 20060622

REACTIONS (12)
  - APHASIA [None]
  - CONFUSIONAL STATE [None]
  - GENERAL PHYSICAL HEALTH DETERIORATION [None]
  - HAEMORRHAGIC STROKE [None]
  - HEPATIC LESION [None]
  - ISCHAEMIC STROKE [None]
  - OVARIAN CANCER [None]
  - PLEURAL EFFUSION [None]
  - PULMONARY EMBOLISM [None]
  - SUBILEUS [None]
  - THROMBOCYTOPENIA [None]
  - VENOUS THROMBOSIS LIMB [None]
